FAERS Safety Report 20869729 (Version 1)
Quarter: 2022Q2

REPORT INFORMATION
  Report Type: Spontaneous
  Country: US (occurrence: US)
  Receive Date: 20220525
  Receipt Date: 20220525
  Transmission Date: 20220720
  Serious: Yes (Other)
  Sender: FDA-Public Use
  Company Number: US-SANOFI-01099072

PATIENT
  Sex: Female

DRUGS (6)
  1. MULTAQ [Suspect]
     Active Substance: DRONEDARONE
     Indication: Atrial fibrillation
     Dosage: 400 MG, BID
     Dates: start: 20220506
  2. LOSARTAN [Concomitant]
     Active Substance: LOSARTAN
     Dosage: UNK
  3. DILTIAZEM [Concomitant]
     Active Substance: DILTIAZEM
     Indication: Atrial fibrillation
     Dosage: 90 MG
  4. DILTIAZEM [Concomitant]
     Active Substance: DILTIAZEM
  5. METOPROLOL [Concomitant]
     Active Substance: METOPROLOL
     Dosage: 25 MG, QID
  6. AMIODARONE [Concomitant]
     Active Substance: AMIODARONE
     Dosage: UNK

REACTIONS (2)
  - Atrial fibrillation [Not Recovered/Not Resolved]
  - Palpitations [Not Recovered/Not Resolved]
